FAERS Safety Report 14896881 (Version 1)
Quarter: 2018Q2

REPORT INFORMATION
  Report Type: Spontaneous
  Country: US (occurrence: US)
  Receive Date: 20180515
  Receipt Date: 20180515
  Transmission Date: 20180711
  Serious: Yes (Other)
  Sender: FDA-Public Use
  Company Number: US-PFIZER INC-2018192385

PATIENT
  Age: 62 Year
  Sex: Female

DRUGS (24)
  1. METFORMIN [Concomitant]
     Active Substance: METFORMIN HYDROCHLORIDE
     Indication: DIABETES MELLITUS
     Dosage: UNK
     Dates: start: 2004, end: 201712
  2. ATENOLOL. [Concomitant]
     Active Substance: ATENOLOL
     Indication: CARDIAC DISORDER
     Dosage: UNK
     Dates: start: 2004, end: 2016
  3. FERROUS [Concomitant]
     Active Substance: IRON
     Dosage: UNK
     Dates: start: 2013, end: 2016
  4. CENTRUM SILVER /02363801/ [Concomitant]
     Active Substance: MINERALS\VITAMINS
     Dosage: UNK
     Dates: start: 2002
  5. OMEPRAZOLE. [Suspect]
     Active Substance: OMEPRAZOLE
     Indication: GASTROOESOPHAGEAL REFLUX DISEASE
     Dosage: 40 MG, UNK
     Dates: start: 2017
  6. EPIPEN [Concomitant]
     Active Substance: EPINEPHRINE
     Indication: HYPERSENSITIVITY
     Dosage: UNK
     Dates: start: 2010
  7. FISH OIL [Concomitant]
     Active Substance: FISH OIL
     Indication: DYSLIPIDAEMIA
     Dosage: UNK
     Dates: start: 2008
  8. BENADRYL [Concomitant]
     Active Substance: DIPHENHYDRAMINE HYDROCHLORIDE
     Indication: ALLERGY TO ARTHROPOD BITE
     Dosage: UNK
     Dates: start: 2008
  9. ZINC. [Concomitant]
     Active Substance: ZINC
     Dosage: UNK
     Dates: start: 2013
  10. NEXIUM [Suspect]
     Active Substance: ESOMEPRAZOLE MAGNESIUM
     Indication: GASTROOESOPHAGEAL REFLUX DISEASE
     Dosage: 40 MG, UNK
     Dates: start: 2004, end: 2017
  11. PROTONIX [Suspect]
     Active Substance: PANTOPRAZOLE SODIUM
     Indication: GASTROOESOPHAGEAL REFLUX DISEASE
     Dosage: 40 MG, UNK
     Dates: start: 20070401, end: 20070910
  12. TRULICITY [Concomitant]
     Active Substance: DULAGLUTIDE
     Indication: DIABETES MELLITUS
     Dosage: UNK
     Dates: start: 201712
  13. TRAMADOL HCL [Concomitant]
     Active Substance: TRAMADOL HYDROCHLORIDE
     Dosage: UNK
     Dates: start: 2014
  14. NIFEDIAC CC [Concomitant]
     Active Substance: NIFEDIPINE
     Indication: HYPERTENSION
     Dosage: UNK
     Dates: start: 2007, end: 2012
  15. BAYER ASPIRIN [Concomitant]
     Active Substance: ASPIRIN
     Indication: CARDIAC DISORDER
     Dosage: UNK
     Dates: start: 2013
  16. GARLIC. [Concomitant]
     Active Substance: GARLIC
     Indication: HYPERTENSION
     Dosage: UNK
     Dates: start: 1998
  17. MICARDIS HCT [Concomitant]
     Active Substance: HYDROCHLOROTHIAZIDE\TELMISARTAN
     Indication: HYPERTENSION
     Dosage: UNK
     Dates: start: 2008
  18. NEURONTIN [Concomitant]
     Active Substance: GABAPENTIN
     Dosage: UNK
     Dates: start: 2015, end: 2018
  19. ZOCOR [Concomitant]
     Active Substance: SIMVASTATIN
     Indication: DYSLIPIDAEMIA
     Dosage: UNK
     Dates: start: 2004, end: 2006
  20. JANUVIA [Concomitant]
     Active Substance: SITAGLIPTIN PHOSPHATE
     Indication: DIABETES MELLITUS
     Dosage: UNK
     Dates: start: 201712
  21. PEPTO-BISMOL [Concomitant]
     Active Substance: BISMUTH SUBSALICYLATE
     Dosage: UNK UNK, AS NEEDED
     Dates: start: 2006
  22. GLIPIZIDE. [Concomitant]
     Active Substance: GLIPIZIDE
     Indication: DIABETES MELLITUS
     Dosage: UNK
     Dates: start: 2004, end: 2016
  23. NORVASC [Concomitant]
     Active Substance: AMLODIPINE BESYLATE
     Indication: HYPERTENSION
     Dosage: UNK
  24. VITAMIN D [Concomitant]
     Active Substance: CHOLECALCIFEROL
     Dosage: UNK
     Dates: start: 2017

REACTIONS (1)
  - Chronic kidney disease [Not Recovered/Not Resolved]

NARRATIVE: CASE EVENT DATE: 2013
